FAERS Safety Report 5461400-4 (Version None)
Quarter: 2007Q3

REPORT INFORMATION
  Report Type: 
  Country: None (occurrence: None)
  Receive Date: 20070918
  Receipt Date: 20070918
  Transmission Date: 20080115
  Serious: Yes (Other)
  Sender: FDA-Public Use
  Company Number: None

PATIENT
  Sex: Female
  Weight: 61.2356 kg

DRUGS (1)
  1. REMERON [Suspect]
     Indication: AFFECTIVE DISORDER
     Dosage: 45 MG QD PO
     Route: 048
     Dates: start: 20070816, end: 20070914

REACTIONS (7)
  - ANHEDONIA [None]
  - ASTHENIA [None]
  - DEPRESSION [None]
  - FEELING OF DESPAIR [None]
  - HYPOAESTHESIA [None]
  - SUICIDAL IDEATION [None]
  - THERAPEUTIC RESPONSE UNEXPECTED WITH DRUG SUBSTITUTION [None]
